FAERS Safety Report 9828452 (Version 2)
Quarter: 2014Q1

REPORT INFORMATION
  Report Type: Spontaneous
  Country: US (occurrence: US)
  Receive Date: 20140117
  Receipt Date: 20140128
  Transmission Date: 20141002
  Serious: Yes (Other)
  Sender: FDA-Public Use
  Company Number: US-TEVA-456870USA

PATIENT
  Sex: Female

DRUGS (4)
  1. CLONAZEPAM [Suspect]
     Indication: PARKINSON^S DISEASE
     Dosage: 1 TABLET TWICE A DAY AS NEEDED
     Dates: start: 201201
  2. CARBIDOPA AND LEVODOPA [Interacting]
     Indication: PARKINSON^S DISEASE
     Dosage: 25/100, 1.5 TABS EVERY 3 HOURS
     Dates: start: 2007
  3. ENTACAPONE [Interacting]
     Indication: PARKINSON^S DISEASE
  4. ROPINIROLE [Suspect]
     Indication: PARKINSON^S DISEASE
     Dosage: 6 MILLIGRAM DAILY;

REACTIONS (14)
  - Swollen tongue [Unknown]
  - Parkinson^s disease [Unknown]
  - Weight decreased [Unknown]
  - Lip swelling [Unknown]
  - Throat irritation [Unknown]
  - Dyspnoea [Unknown]
  - Drug ineffective [Unknown]
  - Dyskinesia [Unknown]
  - Balance disorder [Unknown]
  - Nausea [Unknown]
  - Constipation [Unknown]
  - Chills [Unknown]
  - Drug interaction [Unknown]
  - Depression [Unknown]
